FAERS Safety Report 6462164-8 (Version None)
Quarter: 2009Q4

REPORT INFORMATION
  Report Type: 
  Country: None (occurrence: None)
  Receive Date: 20091130
  Receipt Date: 20091123
  Transmission Date: 20100525
  Serious: Yes (Life-Threatening, Hospitalization)
  Sender: FDA-Public Use
  Company Number: FR-BAYER-200828311GPV

PATIENT
  Age: 20 Month
  Sex: Male
  Weight: 12 kg

DRUGS (7)
  1. KOGENATE [Suspect]
     Indication: FACTOR VIII DEFICIENCY
     Route: 042
     Dates: start: 20080117, end: 20080906
  2. KOGENATE [Suspect]
     Route: 042
     Dates: start: 20080117, end: 20080906
  3. KOGENATE [Suspect]
     Route: 042
     Dates: start: 20080117, end: 20080906
  4. KOGENATE [Suspect]
     Route: 042
     Dates: start: 20081007, end: 20081009
  5. KOGENATE [Suspect]
     Route: 042
     Dates: start: 20080221, end: 20080221
  6. KOGENATE [Suspect]
     Route: 042
     Dates: start: 20080427, end: 20080727
  7. KOGENATE [Suspect]
     Route: 042
     Dates: start: 20080906, end: 20080906

REACTIONS (3)
  - CEREBRAL HAEMORRHAGE [None]
  - FACTOR VIII INHIBITION [None]
  - INTRACRANIAL HAEMATOMA [None]
